FAERS Safety Report 9629205 (Version 1)
Quarter: 2013Q4

REPORT INFORMATION
  Report Type: Spontaneous
  Country: US (occurrence: US)
  Receive Date: 20131017
  Receipt Date: 20131017
  Transmission Date: 20140711
  Serious: Yes (Hospitalization)
  Sender: FDA-Public Use
  Company Number: US-MPIJNJ-2013MPI000555

PATIENT
  Age: 63 Year
  Sex: Female

DRUGS (1)
  1. VELCADE [Suspect]
     Indication: PLASMA CELL MYELOMA
     Dosage: 2.5 MG, 1/WEEK
     Route: 042

REACTIONS (6)
  - Hyporeflexia [Not Recovered/Not Resolved]
  - Diarrhoea [Not Recovered/Not Resolved]
  - Pain in extremity [Unknown]
  - Decreased appetite [Not Recovered/Not Resolved]
  - Peripheral sensory neuropathy [Unknown]
  - Paraesthesia [Not Recovered/Not Resolved]
